FAERS Safety Report 8242220-4 (Version None)
Quarter: 2012Q1

REPORT INFORMATION
  Report Type: 
  Country: None (occurrence: None)
  Receive Date: 20120329
  Receipt Date: 20120319
  Transmission Date: 20120608
  Serious: Yes (Hospitalization)
  Sender: FDA-Public Use
  Company Number: BR-SANOFI-AVENTIS-2012SA014716

PATIENT
  Age: 11 Year
  Sex: Male

DRUGS (6)
  1. DDAVP [Suspect]
     Indication: DIABETES INSIPIDUS
     Route: 048
     Dates: start: 20010101, end: 20111201
  2. DDAVP [Suspect]
     Route: 048
     Dates: start: 20120319
  3. PHENOBARBITAL TAB [Concomitant]
     Indication: CONVULSION
  4. DDAVP [Suspect]
     Route: 048
     Dates: start: 20111201
  5. DDAVP [Suspect]
     Route: 048
     Dates: start: 20111201, end: 20111201
  6. DDAVP [Suspect]
     Route: 048

REACTIONS (4)
  - HYPOTENSION [None]
  - CONVULSION [None]
  - DYSPNOEA [None]
  - MEDICATION ERROR [None]
